FAERS Safety Report 7885005-0 (Version None)
Quarter: 2011Q4

REPORT INFORMATION
  Report Type: 
  Country: None (occurrence: None)
  Receive Date: 20111102
  Receipt Date: 20111031
  Transmission Date: 20120403
  Serious: Yes (Hospitalization)
  Sender: FDA-Public Use
  Company Number: US-PFIZER INC-2011266101

PATIENT
  Age: 41 Year
  Sex: Female

DRUGS (2)
  1. LYRICA [Suspect]
     Dosage: UNK
     Dates: start: 20110915
  2. OPANA [Suspect]
     Dosage: UNK
     Route: 048
     Dates: start: 20110915

REACTIONS (2)
  - UNRESPONSIVE TO STIMULI [None]
  - PANCREATITIS ACUTE [None]
